FAERS Safety Report 18869419 (Version 9)
Quarter: 2022Q2

REPORT INFORMATION
  Report Type: Report from Study
  Country: US (occurrence: US)
  Receive Date: 20210209
  Receipt Date: 20220428
  Transmission Date: 20220721
  Serious: Yes (Other)
  Sender: FDA-Public Use
  Company Number: US-ALXN-A202119548

PATIENT
  Sex: Female

DRUGS (4)
  1. BENADRYL [Suspect]
     Active Substance: DIPHENHYDRAMINE HYDROCHLORIDE
     Indication: Rash
     Dosage: UNK
     Route: 065
  2. PREDNISONE [Suspect]
     Active Substance: PREDNISONE
     Indication: Product used for unknown indication
     Dosage: UNK
     Route: 065
  3. STRENSIQ [Suspect]
     Active Substance: ASFOTASE ALFA
     Indication: Hypophosphatasia
     Dosage: UNK
     Route: 065
  4. ZOFRAN [Suspect]
     Active Substance: ONDANSETRON HYDROCHLORIDE
     Indication: Product used for unknown indication
     Dosage: UNK
     Route: 065

REACTIONS (25)
  - Rash [Not Recovered/Not Resolved]
  - Malaise [Not Recovered/Not Resolved]
  - Asthenia [Not Recovered/Not Resolved]
  - Nausea [Not Recovered/Not Resolved]
  - Ligament laxity [Unknown]
  - Hypermobility syndrome [Unknown]
  - Autonomic nervous system imbalance [Unknown]
  - Musculoskeletal pain [Recovering/Resolving]
  - Peripheral swelling [Unknown]
  - Urticaria [Unknown]
  - Diarrhoea [Unknown]
  - Product dose omission issue [Unknown]
  - Fatigue [Unknown]
  - Pain [Unknown]
  - Abdominal pain upper [Unknown]
  - Crepitations [Unknown]
  - Abdominal tenderness [Unknown]
  - Flushing [Unknown]
  - Pruritus [Unknown]
  - Spinal pain [Unknown]
  - Bone pain [Unknown]
  - Injection site pain [Unknown]
  - Injection site rash [Unknown]
  - Injection site pruritus [Unknown]
  - Contusion [Unknown]

NARRATIVE: CASE EVENT DATE: 20210202
